FAERS Safety Report 4893483-4 (Version None)
Quarter: 2006Q1

REPORT INFORMATION
  Report Type: 
  Country: None (occurrence: None)
  Receive Date: 20060127
  Receipt Date: 20050727
  Transmission Date: 20060701
  Serious: No
  Sender: FDA-Public Use
  Company Number: US-BRISTOL-MYERS SQUIBB COMPANY-13052667

PATIENT
  Age: 16 Year
  Sex: Female

DRUGS (2)
  1. KENALOG-10 [Suspect]
     Indication: HYPERTROPHIC SCAR
     Route: 023
  2. MULTI-VITAMIN [Concomitant]

REACTIONS (1)
  - HYPERSENSITIVITY [None]
